FAERS Safety Report 6896201-3 (Version None)
Quarter: 2010Q3

REPORT INFORMATION
  Report Type: 
  Country: None (occurrence: None)
  Receive Date: 20100802
  Receipt Date: 20100726
  Transmission Date: 20110219
  Serious: Yes (Congenital Anomaly, Other)
  Sender: FDA-Public Use
  Company Number: A0872416A

PATIENT
  Sex: Female

DRUGS (10)
  1. COMBIVIR [Suspect]
     Indication: ANTIVIRAL TREATMENT
     Dates: start: 20040701
  2. VIRAMUNE [Suspect]
     Indication: ANTIVIRAL TREATMENT
     Dates: start: 20040701
  3. AMOXICILLIN [Concomitant]
  4. AMPICILLIN [Concomitant]
  5. DEXAMETHASONE [Concomitant]
  6. ERYTHROMYCIN [Concomitant]
  7. FERROUS SULFATE [Concomitant]
  8. FOLIC ACID [Concomitant]
  9. ISOXSUPRINE HCL [Concomitant]
  10. ZIDOVUDINE [Concomitant]

REACTIONS (5)
  - CONGENITAL CYST [None]
  - CYST [None]
  - DRUG EXPOSURE DURING PREGNANCY [None]
  - NAEVUS FLAMMEUS [None]
  - PREMATURE BABY [None]
